APPROVED DRUG PRODUCT: THIORIDAZINE HYDROCHLORIDE
Active Ingredient: THIORIDAZINE HYDROCHLORIDE
Strength: 10MG
Dosage Form/Route: TABLET;ORAL
Application: A088004 | Product #002
Applicant: MYLAN PHARMACEUTICALS INC
Approved: Mar 15, 1983 | RLD: No | RS: No | Type: RX